FAERS Safety Report 5258406-7 (Version None)
Quarter: 2007Q1

REPORT INFORMATION
  Report Type: 
  Country: None (occurrence: None)
  Receive Date: 20070306
  Receipt Date: 20070306
  Transmission Date: 20070707
  Serious: Yes (Life-Threatening)
  Sender: FDA-Public Use
  Company Number: None

PATIENT
  Age: 57 Year
  Sex: Male
  Weight: 81.6475 kg

DRUGS (2)
  1. HYDROCHLOROTHIAZIDE [Suspect]
     Indication: BLOOD PRESSURE DECREASED
     Dosage: 50MG 1 A DAY
     Dates: start: 20060505, end: 20060529
  2. LISINOPRIL [Suspect]
     Indication: BLOOD PRESSURE DECREASED
     Dosage: 10 MG 1 A DAY
     Dates: start: 20050519, end: 20060529

REACTIONS (6)
  - ABASIA [None]
  - BLOOD POTASSIUM DECREASED [None]
  - HYPERHIDROSIS [None]
  - TREMOR [None]
  - VERTIGO [None]
  - VOMITING [None]
